FAERS Safety Report 19984355 (Version 3)
Quarter: 2021Q4

REPORT INFORMATION
  Report Type: Spontaneous
  Country: US (occurrence: US)
  Receive Date: 20211022
  Receipt Date: 20211216
  Transmission Date: 20220303
  Serious: Yes (Hospitalization)
  Sender: FDA-Public Use
  Company Number: US-CELGENE-USA-20211005135

PATIENT
  Age: 75 Year
  Sex: Male
  Weight: 87.622 kg

DRUGS (19)
  1. AZACITIDINE [Suspect]
     Active Substance: AZACITIDINE
     Indication: Myelodysplastic syndrome
     Route: 041
     Dates: start: 20210322, end: 20210915
  2. AZACITIDINE [Suspect]
     Active Substance: AZACITIDINE
     Route: 041
     Dates: start: 20211004, end: 20211006
  3. VENETOCLAX [Suspect]
     Active Substance: VENETOCLAX
     Indication: Myelodysplastic syndrome
     Route: 048
  4. JANUMET [Concomitant]
     Active Substance: METFORMIN HYDROCHLORIDE\SITAGLIPTIN PHOSPHATE
     Indication: Type 2 diabetes mellitus
     Dosage: 100/50 MG
     Route: 048
     Dates: start: 2006
  5. Lantus Insuline [Concomitant]
     Indication: Type 2 diabetes mellitus
     Dosage: 60 IU (INTERNATIONAL UNIT)
     Route: 058
     Dates: start: 2006
  6. Lantus Insuline [Concomitant]
     Dosage: 50 IU (INTERNATIONAL UNIT)
     Route: 058
     Dates: start: 2006
  7. ASPIRIN [Concomitant]
     Active Substance: ASPIRIN
     Indication: Anticoagulant therapy
     Dosage: 81 MILLIGRAM
     Route: 048
     Dates: start: 2015
  8. SYNTHROID [Concomitant]
     Active Substance: LEVOTHYROXINE SODIUM
     Indication: Thyroid disorder
     Dosage: 81 MICROGRAM
     Route: 048
     Dates: start: 2005
  9. METOPROLOL [Concomitant]
     Active Substance: METOPROLOL
     Indication: Hypertension
     Dosage: 100 MILLIGRAM
     Route: 048
     Dates: start: 2001
  10. METOPROLOL [Concomitant]
     Active Substance: METOPROLOL
     Dosage: 50 MILLIGRAM
     Route: 048
     Dates: start: 2001
  11. FOLIC ACID [Concomitant]
     Active Substance: FOLIC ACID
     Indication: Anaemia
     Dosage: 1 MILLIGRAM
     Route: 048
     Dates: start: 2020
  12. VITAMINS [Concomitant]
     Active Substance: VITAMINS
     Indication: Supplementation therapy
     Route: 048
     Dates: start: 2020
  13. VITAMIN E [Concomitant]
     Active Substance: .ALPHA.-TOCOPHEROL
     Indication: Supplementation therapy
     Dosage: 5000 IU (INTERNATIONAL UNIT)
     Route: 048
     Dates: start: 2020
  14. PROCRIT [Concomitant]
     Active Substance: ERYTHROPOIETIN
     Indication: Anaemia prophylaxis
     Dosage: 4000 IU (INTERNATIONAL UNIT)
     Route: 058
     Dates: start: 20210407
  15. PANTOPRAZOLE [Concomitant]
     Active Substance: PANTOPRAZOLE
     Indication: Abdominal pain upper
     Dosage: 80 MILLIGRAM
     Route: 048
     Dates: start: 20210723
  16. INSULIN NOS [Concomitant]
     Active Substance: INSULIN NOS
     Indication: Diabetes mellitus
     Dosage: 45 IU (INTERNATIONAL UNIT)
     Route: 058
     Dates: start: 20210723
  17. INSULIN NOS [Concomitant]
     Active Substance: INSULIN NOS
     Route: 058
     Dates: start: 20210910, end: 20210910
  18. LEVAQUIN [Concomitant]
     Active Substance: LEVOFLOXACIN
     Indication: Prophylaxis
     Dosage: 750 MILLIGRAM
     Route: 048
     Dates: start: 20210824
  19. MAGNESIUM OXIDE [Concomitant]
     Active Substance: MAGNESIUM OXIDE
     Indication: Hypomagnesaemia
     Dosage: 800 MILLIGRAM
     Route: 048
     Dates: start: 20211109

REACTIONS (1)
  - Cerebrovascular accident [Not Recovered/Not Resolved]

NARRATIVE: CASE EVENT DATE: 20211007
